FAERS Safety Report 21043688 (Version 1)
Quarter: 2022Q3

REPORT INFORMATION
  Report Type: Spontaneous
  Country: US (occurrence: US)
  Receive Date: 20220705
  Receipt Date: 20220705
  Transmission Date: 20221027
  Serious: No
  Sender: FDA-Public Use
  Company Number: US-BRISTOL-MYERS SQUIBB COMPANY-2022-068093

PATIENT
  Age: 57 Year
  Sex: Female
  Weight: 92.99 kg

DRUGS (1)
  1. POMALYST [Suspect]
     Active Substance: POMALIDOMIDE
     Indication: Plasma cell myeloma
     Dosage: FREQUENCY : EVERY MONDAY, WEDNESDAY, AND FRIDAY FOR 28 DAYS
     Route: 048
     Dates: start: 20210614

REACTIONS (1)
  - Neutrophil count decreased [Not Recovered/Not Resolved]
